FAERS Safety Report 9735533 (Version 1)
Quarter: 2013Q4

REPORT INFORMATION
  Report Type: Spontaneous
  Country: US (occurrence: US)
  Receive Date: 20131206
  Receipt Date: 20131206
  Transmission Date: 20140711
  Serious: No
  Sender: FDA-Public Use
  Company Number: US-GILEAD-2009-0023500

PATIENT
  Age: 68 Year
  Sex: Male
  Weight: 69.4 kg

DRUGS (13)
  1. LETAIRIS [Suspect]
     Indication: PULMONARY ARTERIAL HYPERTENSION
     Route: 048
     Dates: start: 20090520
  2. OXYGEN [Concomitant]
  3. ADVAIR [Concomitant]
  4. ALBUTEROL [Concomitant]
  5. SPIRIVA [Concomitant]
  6. WELLBUTRIN SR [Concomitant]
  7. ALPRAZOLAM [Concomitant]
  8. MUCINEX [Concomitant]
  9. FISH OIL [Concomitant]
  10. VITAMIN D [Concomitant]
  11. ASPIRIN [Concomitant]
  12. GARLIC [Concomitant]
  13. FOLIC ACID [Concomitant]

REACTIONS (1)
  - Rash [Not Recovered/Not Resolved]
